FAERS Safety Report 4638057-5 (Version None)
Quarter: 2005Q2

REPORT INFORMATION
  Report Type: 
  Country: None (occurrence: None)
  Receive Date: 20050415
  Receipt Date: 20050325
  Transmission Date: 20051028
  Serious: Yes (Hospitalization)
  Sender: FDA-Public Use
  Company Number: USA030330430

PATIENT
  Age: 61 Year
  Sex: Female
  Weight: 95 kg

DRUGS (3)
  1. HUMULIN R [Suspect]
     Indication: DIABETES MELLITUS
     Dosage: 10 U DAY
  2. HUMULIN N [Suspect]
     Indication: DIABETES MELLITUS
  3. HUMULIN L [Suspect]
     Indication: DIABETES MELLITUS

REACTIONS (18)
  - BLOOD GLUCOSE INCREASED [None]
  - BLOOD PRESSURE INCREASED [None]
  - CATARACT [None]
  - CELLULITIS [None]
  - COUGH [None]
  - DEHYDRATION [None]
  - DIABETIC KETOACIDOSIS [None]
  - DIARRHOEA [None]
  - DRUG TOXICITY [None]
  - EYE LASER SURGERY [None]
  - FATIGUE [None]
  - MALAISE [None]
  - NAUSEA [None]
  - SINUSITIS [None]
  - SKIN ULCER [None]
  - SURGERY [None]
  - TOOTH INFECTION [None]
  - VOMITING [None]
